FAERS Safety Report 17608183 (Version 1)
Quarter: 2020Q1

REPORT INFORMATION
  Report Type: Report from Study
  Country: DE (occurrence: DE)
  Receive Date: 20200331
  Receipt Date: 20200331
  Transmission Date: 20200409
  Serious: Yes (Hospitalization, Other)
  Sender: FDA-Public Use
  Company Number: DE-BRISTOL-MYERS SQUIBB COMPANY-BMS-2020-017047

PATIENT
  Age: 78 Year
  Sex: Female

DRUGS (5)
  1. NIVOLUMAB [Suspect]
     Active Substance: NIVOLUMAB
     Indication: MALIGNANT MELANOMA
     Dosage: 67.0 MILLIGRAM, Q3WK
     Route: 042
     Dates: start: 20200110
  2. PREDNICARBATE. [Concomitant]
     Active Substance: PREDNICARBATE
     Indication: PRODUCT USED FOR UNKNOWN INDICATION
     Dosage: UNK
     Route: 065
  3. FEXOFENADINE HYDROCHLORIDE. [Concomitant]
     Active Substance: FEXOFENADINE HYDROCHLORIDE
     Indication: PRODUCT USED FOR UNKNOWN INDICATION
     Dosage: UNK
     Route: 065
  4. IPILIMUMAB [Suspect]
     Active Substance: IPILIMUMAB
     Indication: MALIGNANT MELANOMA
     Dosage: 201 MILLIGRAM, Q3WK
     Route: 042
     Dates: start: 20200110
  5. METHYLPREDNISOLONE ACEPONATE [Concomitant]
     Active Substance: METHYLPREDNISOLONE ACEPONATE
     Indication: PRODUCT USED FOR UNKNOWN INDICATION
     Dosage: UNK
     Route: 065

REACTIONS (6)
  - Dehydration [Recovered/Resolved]
  - Dyspnoea [Recovering/Resolving]
  - Anaemia [Unknown]
  - Fatigue [Recovering/Resolving]
  - Pruritus [Recovered/Resolved]
  - Rash maculo-papular [Recovered/Resolved]

NARRATIVE: CASE EVENT DATE: 20200112
